FAERS Safety Report 15545207 (Version 3)
Quarter: 2018Q4

REPORT INFORMATION
  Report Type: Spontaneous
  Country: US (occurrence: US)
  Receive Date: 20181024
  Receipt Date: 20181220
  Transmission Date: 20190205
  Serious: No
  Sender: FDA-Public Use
  Company Number: US-PFIZER INC-2018429131

PATIENT
  Sex: Male
  Weight: 158.7 kg

DRUGS (2)
  1. CELEBREX [Suspect]
     Active Substance: CELECOXIB
     Indication: PAIN
     Dosage: UNK
     Route: 048
  2. NIACIN. [Suspect]
     Active Substance: NIACIN
     Dosage: UNK

REACTIONS (2)
  - Palpitations [Recovered/Resolved]
  - Drug hypersensitivity [Unknown]
